FAERS Safety Report 5570580-1 (Version None)
Quarter: 2007Q4

REPORT INFORMATION
  Report Type: 
  Country: None (occurrence: None)
  Receive Date: 20071221
  Receipt Date: 20071217
  Transmission Date: 20080405
  Serious: Yes (Hospitalization)
  Sender: FDA-Public Use
  Company Number: US-BRISTOL-MYERS SQUIBB COMPANY-14017602

PATIENT
  Age: 55 Year
  Sex: Female
  Weight: 60 kg

DRUGS (9)
  1. ORENCIA [Suspect]
     Indication: RHEUMATOID ARTHRITIS
     Route: 042
  2. PLAQUENIL [Concomitant]
  3. ABREVA [Concomitant]
  4. VYTORIN [Concomitant]
  5. METHOTREXATE [Concomitant]
  6. PREMARIN [Concomitant]
  7. TENORETIC 100 [Concomitant]
  8. PREDNISONE [Concomitant]
  9. PROTONIX [Concomitant]

REACTIONS (5)
  - BLOOD CHOLESTEROL INCREASED [None]
  - BLOOD PRESSURE DECREASED [None]
  - HYPERTENSION [None]
  - RENAL FAILURE [None]
  - TENDON DISORDER [None]
